FAERS Safety Report 16650413 (Version 1)
Quarter: 2019Q3

REPORT INFORMATION
  Report Type: Spontaneous
  Country: US (occurrence: US)
  Receive Date: 20190731
  Receipt Date: 20190731
  Transmission Date: 20191004
  Serious: No
  Sender: FDA-Public Use
  Company Number: US-AMGEN-USASP2019119604

PATIENT
  Age: 65 Year
  Sex: Male

DRUGS (1)
  1. REPATHA [Suspect]
     Active Substance: EVOLOCUMAB
     Indication: ARTERIOSCLEROSIS
     Dosage: 1 DOSAGE FORM (1 SURECLICK AUTOINJECTOR), Q2WK
     Route: 065

REACTIONS (3)
  - Pain in extremity [Unknown]
  - Rotator cuff syndrome [Unknown]
  - Arthralgia [Unknown]
